FAERS Safety Report 7921002 (Version 3)
Quarter: 2013Q3

REPORT INFORMATION
  Report Type: Spontaneous
  Country: US (occurrence: US)
  Receive Date: 20110429
  Receipt Date: 20130729
  Transmission Date: 20140515
  Serious: Yes (Hospitalization, Other)
  Sender: FDA-Public Use
  Company Number: US-B.I. PHARMACEUTICALS,INC./RIDGEFIELD-2011-BP-11685BP

PATIENT
  Age: 75 Year
  Sex: Female
  Weight: 88.45 kg

DRUGS (15)
  1. PRADAXA [Suspect]
     Indication: ATRIAL FIBRILLATION
     Dosage: 300 MG
     Route: 048
     Dates: start: 20110329, end: 201104
  2. PRADAXA [Suspect]
     Indication: ANTICOAGULANT THERAPY
     Dosage: 150 MG
     Route: 048
     Dates: start: 201104, end: 201104
  3. PRADAXA [Suspect]
     Dosage: 300 MG
     Route: 048
     Dates: start: 201104, end: 20110423
  4. PRADAXA [Suspect]
     Dosage: 150 MG
     Dates: start: 20110425
  5. ALBUTEROL [Concomitant]
  6. XANAX [Concomitant]
     Dosage: 1 MG
  7. AMIODARONE [Concomitant]
     Dosage: 200 MG
  8. CHOLECALCIFEROL [Concomitant]
  9. ADVAIR DISKUS [Concomitant]
  10. NU-IRON [Concomitant]
  11. COZAAR [Concomitant]
     Dosage: 100 MG
  12. METOPROLOL EXTENDED RELEASE [Concomitant]
     Dosage: 100 MG
  13. PRILOSEC [Concomitant]
     Dosage: 20 MG
  14. PAXIL [Concomitant]
     Dosage: 20 MG
  15. PRAVASTATIN [Concomitant]
     Dosage: 20 MG

REACTIONS (7)
  - Transient ischaemic attack [Not Recovered/Not Resolved]
  - Cardiac aneurysm [Not Recovered/Not Resolved]
  - Pulmonary mass [Unknown]
  - Pneumothorax [Unknown]
  - Pulmonary haemorrhage [Unknown]
  - Gastrointestinal haemorrhage [Unknown]
  - Respiratory failure [Unknown]
